FAERS Safety Report 9772578 (Version 1)
Quarter: 2013Q4

REPORT INFORMATION
  Report Type: Spontaneous
  Country: DE (occurrence: DE)
  Receive Date: 20131219
  Receipt Date: 20131219
  Transmission Date: 20140711
  Serious: Yes (Other)
  Sender: FDA-Public Use
  Company Number: GXKR2013DE003809

PATIENT
  Age: 5 Year
  Sex: Male

DRUGS (3)
  1. ENAHEXAL [Suspect]
     Indication: CARDIAC FAILURE
     Dosage: 2.5 MG, QD
     Route: 048
  2. ENAHEXAL [Suspect]
     Indication: HYPERTENSION
     Dosage: 2.5 MG, BID
     Route: 048
     Dates: start: 201310
  3. SPASMOLYT [Concomitant]

REACTIONS (1)
  - Hypothermia [Not Recovered/Not Resolved]
